FAERS Safety Report 5771765-1 (Version None)
Quarter: 2008Q2

REPORT INFORMATION
  Report Type: 
  Country: None (occurrence: None)
  Receive Date: 20080613
  Receipt Date: 20080602
  Transmission Date: 20081010
  Serious: Yes (Other)
  Sender: FDA-Public Use
  Company Number: US-ROCHE-566235

PATIENT
  Sex: Male
  Weight: 76.7 kg

DRUGS (3)
  1. COPEGUS [Suspect]
     Indication: HEPATITIS C
     Dosage: OTHER INDICATION: LYMPHOMA
     Route: 065
  2. PEG-INTRON [Suspect]
     Indication: HEPATITIS C
     Dosage: OTHER INDICATION: LYMPHOMA
     Route: 065
  3. CHEMOTHERAPY [Concomitant]

REACTIONS (4)
  - ASTHENIA [None]
  - LEUKOPENIA [None]
  - LYMPHOMA [None]
  - NEUTROPENIA [None]
